FAERS Safety Report 10469261 (Version 1)
Quarter: 2014Q3

REPORT INFORMATION
  Report Type: Spontaneous
  Country: GB (occurrence: None)
  Receive Date: 20140919
  Receipt Date: 20140919
  Transmission Date: 20150326
  Serious: Yes (Other)
  Sender: FDA-Public Use
  Company Number: 2014-002772

PATIENT
  Age: 77 Year
  Sex: Female
  Weight: 64 kg

DRUGS (14)
  1. AMOXICILLIN. [Concomitant]
     Active Substance: AMOXICILLIN
  2. SALBUTAMOL [Concomitant]
     Active Substance: ALBUTEROL
  3. ZAPAIN (CODEINE PHOSPHATE, PARACETAMOL) [Concomitant]
  4. MORPHINE SULPHATE [Concomitant]
     Active Substance: MORPHINE SULFATE
  5. PREDNISOLONE. [Concomitant]
     Active Substance: PREDNISOLONE
  6. BETAMETHASONE VALERATE. [Concomitant]
     Active Substance: BETAMETHASONE VALERATE
  7. SIMVASTATIN. [Concomitant]
     Active Substance: SIMVASTATIN
  8. TIOTROPIUM [Concomitant]
     Active Substance: TIOTROPIUM
  9. ACTONEL [Suspect]
     Active Substance: RISEDRONATE SODIUM
     Dosage: UNKNOWN, ORAL
     Route: 048
     Dates: start: 20140703
  10. OXYAL /00567501/ (HYALURONIC ACID) [Concomitant]
  11. LEVOTHYROXINE [Concomitant]
     Active Substance: LEVOTHYROXINE
  12. SALMETEROL [Concomitant]
     Active Substance: SALMETEROL
  13. BUPRENORPHINE [Concomitant]
     Active Substance: BUPRENORPHINE
  14. FOLIC ACID. [Concomitant]
     Active Substance: FOLIC ACID

REACTIONS (3)
  - Lip swelling [None]
  - Urticaria [None]
  - Blister [None]

NARRATIVE: CASE EVENT DATE: 20140729
